FAERS Safety Report 5750103-4 (Version None)
Quarter: 2008Q2

REPORT INFORMATION
  Report Type: 
  Country: None (occurrence: None)
  Receive Date: 20080527
  Receipt Date: 20080315
  Transmission Date: 20081010
  Serious: Yes (Hospitalization)
  Sender: FDA-Public Use
  Company Number: GB-PFIZER INC-2008042076

PATIENT

DRUGS (11)
  1. LITHIUM CARBONATE [Suspect]
     Dosage: DAILY DOSE:1.7GRAM
     Route: 064
  2. CLONAZEPAM [Suspect]
     Route: 064
  3. FOLIC ACID [Suspect]
     Dosage: DAILY DOSE:500MCG
     Route: 064
  4. LACTULOSE [Suspect]
     Route: 064
  5. OLANZAPINE [Suspect]
     Dosage: DAILY DOSE:20MG
     Route: 064
  6. RANITIDINE [Concomitant]
     Dosage: DAILY DOSE:50MG
     Route: 064
  7. SODIUM CITRATE [Concomitant]
     Route: 064
  8. SUXAMETHONIUM [Concomitant]
     Route: 064
  9. THIOPENTONE [Concomitant]
     Dosage: DAILY DOSE:250MG
     Route: 064
  10. ISOFLURANE [Concomitant]
     Route: 064
  11. METOCLOPRAMIDE [Concomitant]
     Dosage: DAILY DOSE:10MG
     Route: 064

REACTIONS (5)
  - CONVULSION [None]
  - DRUG EXPOSURE DURING PREGNANCY [None]
  - PREMATURE BABY [None]
  - PULMONARY HYPERTENSION [None]
  - THERAPEUTIC AGENT TOXICITY [None]
